FAERS Safety Report 25565727 (Version 1)
Quarter: 2025Q3

REPORT INFORMATION
  Report Type: Spontaneous
  Country: US (occurrence: US)
  Receive Date: 20250716
  Receipt Date: 20250716
  Transmission Date: 20251020
  Serious: No
  Sender: NOVO NORDISK
  Company Number: US-NOVOPROD-1298931

PATIENT
  Sex: Female

DRUGS (1)
  1. OZEMPIC [Suspect]
     Active Substance: SEMAGLUTIDE
     Indication: Product used for unknown indication
     Route: 058

REACTIONS (6)
  - Fungal infection [Unknown]
  - Pain [Unknown]
  - Vision blurred [Unknown]
  - Diarrhoea [Unknown]
  - Prescription drug used without a prescription [Unknown]
  - Product use in unapproved indication [Unknown]
